FAERS Safety Report 24732890 (Version 2)
Quarter: 2025Q1

REPORT INFORMATION
  Report Type: Report from Study
  Country: PL (occurrence: PL)
  Receive Date: 20241213
  Receipt Date: 20250303
  Transmission Date: 20250409
  Serious: Yes (Death)
  Sender: PFIZER
  Company Number: PL-TAKEDA-2024TUS122129

PATIENT
  Age: 68 Year
  Sex: Female
  Weight: 44.5 kg

DRUGS (2)
  1. ADCETRIS [Suspect]
     Active Substance: BRENTUXIMAB VEDOTIN
  2. MOGAMULIZUMAB [Suspect]
     Active Substance: MOGAMULIZUMAB
     Indication: T-cell lymphoma
     Route: 042
     Dates: start: 20240902, end: 20240925

REACTIONS (1)
  - Neoplasm progression [Fatal]
